FAERS Safety Report 20215069 (Version 25)
Quarter: 2022Q4

REPORT INFORMATION
  Report Type: Report from Study
  Country: US (occurrence: US)
  Receive Date: 20211222
  Receipt Date: 20221115
  Transmission Date: 20230112
  Serious: Yes (Life-Threatening, Hospitalization, Other)
  Sender: FDA-Public Use
  Company Number: US-NOVARTISTESTPH-NVSC2021US292816

PATIENT
  Sex: Female
  Weight: 47.619 kg

DRUGS (14)
  1. TREPROSTINIL [Suspect]
     Active Substance: TREPROSTINIL
     Indication: Pulmonary arterial hypertension
     Dosage: 3 NG/KG/MIN, CONT (STRENGTH: 1 MG/ML)
     Route: 042
     Dates: start: 20211210
  2. TREPROSTINIL [Suspect]
     Active Substance: TREPROSTINIL
     Dosage: 5.5 NG/KG/MIN, CONT
     Route: 042
  3. TREPROSTINIL [Suspect]
     Active Substance: TREPROSTINIL
     Dosage: 7.5 NG/KG/MIN, CONT
     Route: 042
  4. TREPROSTINIL [Suspect]
     Active Substance: TREPROSTINIL
     Dosage: 8 NG/KG/MIN, CONT
     Route: 042
  5. TREPROSTINIL [Suspect]
     Active Substance: TREPROSTINIL
     Dosage: 8.25 NG/KG/MIN, CONT
     Route: 042
  6. TREPROSTINIL [Suspect]
     Active Substance: TREPROSTINIL
     Dosage: 14 NG/KG/MIN, CONT (STRENGTH: 2.5 MG/ML)
     Route: 058
  7. TREPROSTINIL [Suspect]
     Active Substance: TREPROSTINIL
     Dosage: 14 NG/KG/MIN, CONT (STRENGTH: 2.5 MG/ML)
     Route: 058
  8. TREPROSTINIL [Suspect]
     Active Substance: TREPROSTINIL
     Dosage: 16 NG/KG/MIN, CONT (STRENGTH: 1 MG/ML)
     Route: 058
  9. TREPROSTINIL [Suspect]
     Active Substance: TREPROSTINIL
     Dosage: 20 NG/KG/MIN, CONT (STRENGTH:2.5 MG/ML)
     Route: 058
  10. LETAIRIS [Suspect]
     Active Substance: AMBRISENTAN
     Indication: Pulmonary arterial hypertension
     Dosage: UNK
     Route: 065
  11. TADALAFIL [Suspect]
     Active Substance: TADALAFIL
     Indication: Product used for unknown indication
     Dosage: UNK
     Route: 065
  12. ADCIRCA [Concomitant]
     Active Substance: TADALAFIL
     Indication: Pulmonary arterial hypertension
     Dosage: UNK
     Route: 065
  13. OFEV [Concomitant]
     Active Substance: NINTEDANIB
     Indication: Pulmonary arterial hypertension
     Dosage: UNK
     Route: 065
  14. UPTRAVI [Concomitant]
     Active Substance: SELEXIPAG
     Indication: Product used for unknown indication
     Dosage: UNK
     Route: 065

REACTIONS (39)
  - Feeling abnormal [Unknown]
  - Ill-defined disorder [Unknown]
  - Scleroderma [Unknown]
  - Hypersensitivity [Unknown]
  - Anxiety [Unknown]
  - Eye infection [Unknown]
  - Depression [Unknown]
  - Restlessness [Unknown]
  - Gait disturbance [Unknown]
  - Sneezing [Unknown]
  - Urine output increased [Unknown]
  - Seasonal allergy [Unknown]
  - Eye irritation [Unknown]
  - Fine motor skill dysfunction [Unknown]
  - Swelling [Not Recovered/Not Resolved]
  - Arthropathy [Unknown]
  - Peripheral swelling [Not Recovered/Not Resolved]
  - Groin pain [Unknown]
  - Ligament sprain [Unknown]
  - Blood iron decreased [Unknown]
  - Weight increased [Unknown]
  - Fluid retention [Unknown]
  - Abdominal distension [Unknown]
  - Sensitivity to weather change [Unknown]
  - Oedema peripheral [Unknown]
  - Pain in extremity [Not Recovered/Not Resolved]
  - Nausea [Unknown]
  - Arthralgia [Unknown]
  - Diarrhoea [Unknown]
  - Headache [Recovered/Resolved]
  - Myalgia [Unknown]
  - Dyspnoea [Unknown]
  - Injection site irritation [Unknown]
  - Injection site swelling [Unknown]
  - Injection site pain [Not Recovered/Not Resolved]
  - Injection site erythema [Not Recovered/Not Resolved]
  - Injection site extravasation [Unknown]
  - Injection site inflammation [Not Recovered/Not Resolved]
  - Device difficult to use [Unknown]
